FAERS Safety Report 5608003-6 (Version None)
Quarter: 2008Q1

REPORT INFORMATION
  Report Type: 
  Country: None (occurrence: None)
  Receive Date: 20080130
  Receipt Date: 20080122
  Transmission Date: 20080703
  Serious: Yes (Life-Threatening)
  Sender: FDA-Public Use
  Company Number: B0505557A

PATIENT
  Age: 7 Year
  Sex: Female
  Weight: 48 kg

DRUGS (1)
  1. ZINACEF [Suspect]
     Indication: DRUG USE FOR UNKNOWN INDICATION
     Route: 030
     Dates: start: 20071211, end: 20071211

REACTIONS (8)
  - ERYTHEMA [None]
  - FACE OEDEMA [None]
  - HYPERHIDROSIS [None]
  - HYPOAESTHESIA [None]
  - LIP DISORDER [None]
  - OEDEMA PERIPHERAL [None]
  - PALLOR [None]
  - VOMITING [None]
